FAERS Safety Report 25356588 (Version 1)
Quarter: 2025Q2

REPORT INFORMATION
  Report Type: Spontaneous
  Country: US (occurrence: US)
  Receive Date: 20250526
  Receipt Date: 20250526
  Transmission Date: 20250717
  Serious: No
  Sender: ROCHE
  Company Number: US-ROCHE-10000287547

PATIENT
  Sex: Female

DRUGS (15)
  1. ACTEMRA ACTPEN [Suspect]
     Active Substance: TOCILIZUMAB
     Indication: Rheumatoid arthritis
     Dosage: STRENGTH: 162 MG (0.9 ML)
     Route: 058
  2. PROPRANOLOL POW [Concomitant]
     Indication: Blood pressure measurement
  3. AMITRIPTYLINE [Concomitant]
     Active Substance: AMITRIPTYLINE
  4. BUDESONIDE-F [Concomitant]
  5. FAMOTIDINE [Concomitant]
     Active Substance: FAMOTIDINE
  6. FARXIGA [Concomitant]
     Active Substance: DAPAGLIFLOZIN PROPANEDIOL
  7. GABAPENTIN [Concomitant]
     Active Substance: GABAPENTIN
  8. LEFLUNOMIDE [Concomitant]
     Active Substance: LEFLUNOMIDE
  9. LEVOTHYROXINE [Concomitant]
     Active Substance: LEVOTHYROXINE
  10. MELOXICAM [Concomitant]
     Active Substance: MELOXICAM
  11. ONDANSETRON TBD [Concomitant]
  12. PANTOPRAZOLE TBE [Concomitant]
  13. PIOGLITAZONE [Concomitant]
     Active Substance: PIOGLITAZONE
  14. PREMARIN [Concomitant]
     Active Substance: ESTROGENS, CONJUGATED
  15. ROSUVASTATIN [Concomitant]
     Active Substance: ROSUVASTATIN

REACTIONS (3)
  - Sinus disorder [Not Recovered/Not Resolved]
  - Agitation [Not Recovered/Not Resolved]
  - Swelling [Not Recovered/Not Resolved]
